FAERS Safety Report 14160164 (Version 5)
Quarter: 2020Q4

REPORT INFORMATION
  Report Type: Report from Study
  Country: CO (occurrence: CO)
  Receive Date: 20171103
  Receipt Date: 20201127
  Transmission Date: 20210113
  Serious: Yes (Life-Threatening, Hospitalization, Other)
  Sender: FDA-Public Use
  Company Number: PHHY2017CO161468

PATIENT
  Age: 53 Year
  Sex: Male
  Weight: 68 kg

DRUGS (6)
  1. REVOLADE [Suspect]
     Active Substance: ELTROMBOPAG
     Dosage: 50 MG, QD
     Route: 048
  2. REVOLADE [Suspect]
     Active Substance: ELTROMBOPAG
     Dosage: 1 DF,(50MG) Q24H
     Route: 048
  3. REVOLADE [Suspect]
     Active Substance: ELTROMBOPAG
     Indication: IMMUNE THROMBOCYTOPENIA
     Dosage: 25 MG, QD
     Route: 048
     Dates: start: 201602
  4. GLUCOSAMINE SULFATE [Concomitant]
     Active Substance: GLUCOSAMINE SULFATE
     Indication: PRODUCT USED FOR UNKNOWN INDICATION
     Dosage: UNK
     Route: 065
  5. REVOLADE [Suspect]
     Active Substance: ELTROMBOPAG
     Dosage: 100 MG, QD
     Route: 048
  6. LORATADINE. [Concomitant]
     Active Substance: LORATADINE
     Indication: HYPERSENSITIVITY
     Dosage: UNK
     Route: 065

REACTIONS (17)
  - Mean cell haemoglobin concentration increased [Unknown]
  - Product dose omission issue [Unknown]
  - Megakaryocytes abnormal [Unknown]
  - Blood immunoglobulin E increased [Unknown]
  - Lymphocyte count increased [Recovering/Resolving]
  - White blood cell count decreased [Recovering/Resolving]
  - Basophil count increased [Unknown]
  - Influenza [Unknown]
  - Bone marrow failure [Unknown]
  - Haematoma [Unknown]
  - Monocyte count increased [Unknown]
  - Stress [Unknown]
  - Red blood cell count decreased [Unknown]
  - Feeling abnormal [Unknown]
  - Mean platelet volume increased [Unknown]
  - Platelet count decreased [Unknown]
  - Overdose [Unknown]

NARRATIVE: CASE EVENT DATE: 201707
